FAERS Safety Report 11219355 (Version 2)
Quarter: 2015Q3

REPORT INFORMATION
  Report Type: Spontaneous
  Country: US (occurrence: US)
  Receive Date: 20150625
  Receipt Date: 20150820
  Transmission Date: 20151125
  Serious: No
  Sender: FDA-Public Use
  Company Number: US-PFIZER INC-2015206447

PATIENT
  Age: 6 Year
  Sex: Male
  Weight: 20 kg

DRUGS (2)
  1. JUNIOR STRENGTH ADVIL [Suspect]
     Active Substance: IBUPROFEN
     Indication: GROWING PAINS
     Dosage: 100 MG, 1X/DAY
     Route: 048
     Dates: start: 20150616, end: 20150617
  2. JUNIOR STRENGTH ADVIL [Suspect]
     Active Substance: IBUPROFEN
     Indication: MUSCLE SPASMS

REACTIONS (5)
  - Vomiting [Recovered/Resolved]
  - Burning sensation [Recovered/Resolved]
  - Intentional product use issue [Recovered/Resolved]
  - Product quality issue [Recovered/Resolved]
  - Product use issue [Unknown]

NARRATIVE: CASE EVENT DATE: 20150616
